FAERS Safety Report 8122360-0 (Version None)
Quarter: 2012Q1

REPORT INFORMATION
  Report Type: 
  Country: None (occurrence: None)
  Receive Date: 20120208
  Receipt Date: 20101115
  Transmission Date: 20120608
  Serious: Yes (Hospitalization)
  Sender: FDA-Public Use
  Company Number: US-GLAXOSMITHKLINE-A0893479A

PATIENT
  Sex: Male

DRUGS (1)
  1. AVANDIA [Suspect]
     Indication: TYPE 2 DIABETES MELLITUS
     Dosage: 4MG PER DAY
     Route: 048
     Dates: start: 20000101, end: 20060202

REACTIONS (20)
  - AORTIC STENOSIS [None]
  - PAIN [None]
  - CARDIOVASCULAR DISORDER [None]
  - LEFT VENTRICULAR HYPERTROPHY [None]
  - SYNCOPE [None]
  - ECONOMIC PROBLEM [None]
  - FEAR [None]
  - CAROTID ARTERIOSCLEROSIS [None]
  - ANHEDONIA [None]
  - MALAISE [None]
  - DECREASED ACTIVITY [None]
  - CONDITION AGGRAVATED [None]
  - TRICUSPID VALVE INCOMPETENCE [None]
  - HYPERDYNAMIC LEFT VENTRICLE [None]
  - INJURY [None]
  - ASTHENIA [None]
  - MITRAL VALVE CALCIFICATION [None]
  - CORONARY ARTERY DISEASE [None]
  - EMOTIONAL DISTRESS [None]
  - DIASTOLIC DYSFUNCTION [None]
